FAERS Safety Report 8329413 (Version 7)
Quarter: 2013Q1

REPORT INFORMATION
  Report Type: Spontaneous
  Country: US (occurrence: US)
  Receive Date: 20120110
  Receipt Date: 20130313
  Transmission Date: 20140127
  Serious: Yes (Hospitalization, Disabling, Other)
  Sender: FDA-Public Use
  Company Number: US-009507513-1201USA00795

PATIENT
  Sex: Female
  Weight: 65.31 kg

DRUGS (16)
  1. FOSAMAX [Suspect]
     Indication: OSTEOPOROSIS PROPHYLAXIS
     Dosage: 10 MG, QD
     Route: 048
     Dates: start: 19990719, end: 20020104
  2. FOSAMAX [Suspect]
     Dosage: 70 MG, QW
     Route: 048
     Dates: start: 200201, end: 201001
  3. FOSAMAX PLUS D [Suspect]
     Indication: OSTEOPOROSIS PROPHYLAXIS
     Dosage: 70MG/2800IU,QW
     Route: 048
     Dates: start: 200606, end: 200706
  4. ACTONEL [Suspect]
     Indication: OSTEOPOROSIS PROPHYLAXIS
     Dosage: 75 MG, QM
     Route: 048
     Dates: start: 200706, end: 200801
  5. ACTONEL [Suspect]
     Dosage: 150 MG, UNK
     Route: 048
     Dates: start: 200806, end: 201002
  6. VITAMINS (UNSPECIFIED) [Concomitant]
     Dosage: 1 UNK, QD
     Dates: start: 1982
  7. CALCIUM (UNSPECIFIED) [Concomitant]
     Dosage: 600 MG, QD
     Dates: start: 1982
  8. ASCORBIC ACID [Concomitant]
     Dosage: 50000 IU, QD
     Dates: start: 1982
  9. CORTICOSTEROIDS (UNSPECIFIED) [Concomitant]
     Dosage: UNK
     Dates: end: 20110915
  10. AMITRIPTYLINE HYDROCHLORIDE [Concomitant]
     Indication: DEPRESSION
     Dosage: UNK
     Dates: start: 1998
  11. ENBREL [Concomitant]
     Indication: RHEUMATOID ARTHRITIS
     Dosage: 25 MG, BIW
     Route: 058
  12. CELEBREX [Concomitant]
     Indication: RHEUMATOID ARTHRITIS
     Dosage: 200 MG, BID
     Dates: start: 1999, end: 2009
  13. PREDNISONE [Concomitant]
     Indication: RHEUMATOID ARTHRITIS
     Dosage: 5 MG, QD
     Route: 048
  14. GOLD [Concomitant]
     Indication: RHEUMATOID ARTHRITIS
  15. METHOTREXATE [Concomitant]
     Indication: RHEUMATOID ARTHRITIS
  16. DEXAMETHASONE [Concomitant]
     Indication: RHEUMATOID ARTHRITIS

REACTIONS (63)
  - Femur fracture [Unknown]
  - Bone density decreased [Unknown]
  - Lung adenocarcinoma [Unknown]
  - Internal fixation of fracture [Unknown]
  - Fracture nonunion [Unknown]
  - Device failure [Unknown]
  - Intramedullary rod insertion [Unknown]
  - Hysterectomy [Unknown]
  - Oral surgery [Unknown]
  - Thoracotomy [Unknown]
  - Oral surgery [Unknown]
  - Anaemia [Unknown]
  - Euthyroid sick syndrome [Unknown]
  - Limb asymmetry [Unknown]
  - Foot operation [Unknown]
  - Malignant ovarian cyst [Unknown]
  - Lung lobectomy [Unknown]
  - Lung cancer metastatic [Unknown]
  - Femur fracture [Unknown]
  - Pain [Unknown]
  - Pubis fracture [Unknown]
  - Blood cholesterol increased [Unknown]
  - Hypertension [Unknown]
  - Urinary tract infection [Unknown]
  - Biopsy lung [Unknown]
  - Biopsy lymph gland [Unknown]
  - Mediastinoscopy [Unknown]
  - Osteopenia [Unknown]
  - Osteoporosis [Unknown]
  - Tenderness [Unknown]
  - Rib fracture [Unknown]
  - Micturition urgency [Unknown]
  - Intervertebral disc protrusion [Unknown]
  - Osteoarthritis [Unknown]
  - Pain [Not Recovered/Not Resolved]
  - Surgical failure [Unknown]
  - Actinic keratosis [Unknown]
  - Hand deformity [Unknown]
  - Varicose vein [Unknown]
  - Atrophic vulvovaginitis [Unknown]
  - Dry eye [Unknown]
  - Tendon rupture [Unknown]
  - Tuberculin test positive [Unknown]
  - Ovarian cyst [Unknown]
  - Intervertebral disc disorder [Unknown]
  - Endometrial hypertrophy [Unknown]
  - Infection [Unknown]
  - Bundle branch block [Unknown]
  - Pulmonary mass [Unknown]
  - Lymphadenopathy [Unknown]
  - Hiatus hernia [Unknown]
  - Gastrooesophageal reflux disease [Unknown]
  - Joint swelling [Unknown]
  - Dysphagia [Unknown]
  - Drug ineffective [Unknown]
  - Insomnia [Unknown]
  - Hyperlipidaemia [Unknown]
  - Tooth infection [Unknown]
  - Bacterial disease carrier [Unknown]
  - Osteitis [Unknown]
  - Fall [Unknown]
  - Sarcoidosis [Unknown]
  - Seasonal allergy [Unknown]
